FAERS Safety Report 12862988 (Version 2)
Quarter: 2016Q4

REPORT INFORMATION
  Report Type: Spontaneous
  Country: BR (occurrence: BR)
  Receive Date: 20161019
  Receipt Date: 20161119
  Transmission Date: 20170207
  Serious: Yes (Disabling, Other)
  Sender: FDA-Public Use
  Company Number: BR-ASTRAZENECA-2016SF08602

PATIENT
  Age: 76 Year
  Sex: Female

DRUGS (5)
  1. NAPRIX [Concomitant]
     Active Substance: RAMIPRIL
  2. XIGDUO XR [Suspect]
     Active Substance: DAPAGLIFLOZIN PROPANEDIOL\METFORMIN HYDROCHLORIDE
     Indication: DIABETES MELLITUS
     Dosage: 10 MG/1000 MG, DAILY
     Route: 048
     Dates: start: 201606, end: 201609
  3. ASA [Concomitant]
     Active Substance: ASPIRIN
  4. ROSUCOR [Concomitant]
     Active Substance: ROSUVASTATIN CALCIUM
  5. FLUX SR [Concomitant]

REACTIONS (9)
  - Nausea [Not Recovered/Not Resolved]
  - Vomiting [Recovered/Resolved]
  - Asthenia [Recovered/Resolved]
  - Gallbladder enlargement [Not Recovered/Not Resolved]
  - Malaise [Recovered/Resolved]
  - Ocular vascular disorder [Recovered/Resolved]
  - Activities of daily living impaired [Unknown]
  - Depression [Unknown]
  - Blood pressure abnormal [Not Recovered/Not Resolved]

NARRATIVE: CASE EVENT DATE: 2016
